FAERS Safety Report 19313433 (Version 1)
Quarter: 2021Q2

REPORT INFORMATION
  Report Type: Spontaneous
  Country: US (occurrence: US)
  Receive Date: 20210526
  Receipt Date: 20210526
  Transmission Date: 20210717
  Serious: No
  Sender: FDA-Public Use
  Company Number: None

PATIENT
  Age: 39 Year
  Sex: Male

DRUGS (5)
  1. FOLIC ACID. [Concomitant]
     Active Substance: FOLIC ACID
  2. HYDROMORPHONE MG [Suspect]
     Active Substance: HYDROMORPHONE
     Dates: start: 20200731
  3. OMPRAZOLE 20MG [Suspect]
     Active Substance: OMEPRAZOLE
     Dates: start: 20210427
  4. BANOPHEN [Suspect]
     Active Substance: DIPHENHYDRAMINE HYDROCHLORIDE
     Dates: start: 20200225
  5. DEFERASIROX. [Suspect]
     Active Substance: DEFERASIROX
     Indication: SICKLE CELL ANAEMIA
     Route: 048
     Dates: start: 20201016

REACTIONS (1)
  - Laryngeal pain [None]

NARRATIVE: CASE EVENT DATE: 20210526
